FAERS Safety Report 19152441 (Version 1)
Quarter: 2021Q2

REPORT INFORMATION
  Report Type: Spontaneous
  Country: US (occurrence: US)
  Receive Date: 20210416
  Receipt Date: 20210416
  Transmission Date: 20210717
  Serious: No
  Sender: FDA-Public Use
  Company Number: None

PATIENT

DRUGS (2)
  1. LETAIRIS [Suspect]
     Active Substance: AMBRISENTAN
     Indication: PULMONARY HYPERTENSION
  2. ALYQ [Concomitant]
     Active Substance: TADALAFIL

REACTIONS (5)
  - Periorbital swelling [None]
  - Ocular hyperaemia [None]
  - Eye pain [None]
  - Dry eye [None]
  - Hypersensitivity [None]
